FAERS Safety Report 9790851 (Version 5)
Quarter: 2014Q1

REPORT INFORMATION
  Report Type: Spontaneous
  Country: US (occurrence: US)
  Receive Date: 20131231
  Receipt Date: 20140321
  Transmission Date: 20141002
  Serious: Yes (Hospitalization)
  Sender: FDA-Public Use
  Company Number: US-B.I. PHARMACEUTICALS,INC./RIDGEFIELD-2013-BI-43994BP

PATIENT
  Age: 77 Year
  Sex: Male

DRUGS (3)
  1. COMBIVENT [Suspect]
     Indication: PRODUCT USED FOR UNKNOWN INDICATION
     Dosage: STRENGTH: 20 MCG / 100 MCG; DAILY DOSE: 160 MCG / 800 MCG
     Route: 055
     Dates: start: 201311
  2. TRAZODONE [Concomitant]
     Route: 048
  3. TAMSULOSIN [Concomitant]
     Dosage: 0.4 MG
     Route: 048

REACTIONS (3)
  - Respiratory disorder [Unknown]
  - Prescribed overdose [Not Recovered/Not Resolved]
  - Product quality issue [Unknown]
